FAERS Safety Report 5010551-7 (Version None)
Quarter: 2006Q2

REPORT INFORMATION
  Report Type: 
  Country: None (occurrence: None)
  Receive Date: 20060523
  Receipt Date: 20060523
  Transmission Date: 20061013
  Serious: No
  Sender: FDA-Public Use
  Company Number: None

PATIENT
  Age: 59 Year
  Sex: Male

DRUGS (2)
  1. MEPERIDINE HCL [Suspect]
     Indication: ENDOSCOPY
     Dosage: 50 MG  IV
     Route: 042
     Dates: start: 20041027
  2. VERSED [Suspect]
     Dosage: 2 MG  IV
     Route: 042
     Dates: start: 20041027

REACTIONS (8)
  - APNOEA [None]
  - BLOOD GLUCOSE INCREASED [None]
  - CARDIO-RESPIRATORY ARREST [None]
  - HEART RATE INCREASED [None]
  - HYPERTENSION [None]
  - LOSS OF CONSCIOUSNESS [None]
  - OXYGEN SATURATION DECREASED [None]
  - RENAL IMPAIRMENT [None]
